FAERS Safety Report 4525300-6 (Version None)
Quarter: 2004Q4

REPORT INFORMATION
  Report Type: 
  Country: None (occurrence: None)
  Receive Date: 20041213
  Receipt Date: 20041207
  Transmission Date: 20050328
  Serious: Yes (Hospitalization)
  Sender: FDA-Public Use
  Company Number: BE-ROCHE-388439

PATIENT
  Age: 70 Year
  Sex: Male
  Weight: 61 kg

DRUGS (4)
  1. CAPECITABINE [Suspect]
     Dosage: ADMINISTERED ON DAYS 1-14 FOLLOWED BY 7 DAYS REST IN EACH CYCLE.
     Route: 048
     Dates: start: 20041018, end: 20041101
  2. OXALIPLATIN [Suspect]
     Route: 042
     Dates: start: 20041027, end: 20041108
  3. TENORMIN [Concomitant]
  4. LITICAN [Concomitant]
     Dosage: PRN.
     Dates: start: 20041019

REACTIONS (1)
  - ILEITIS [None]
